FAERS Safety Report 10674187 (Version 1)
Quarter: 2014Q4

REPORT INFORMATION
  Report Type: Spontaneous
  Country: CH (occurrence: CH)
  Receive Date: 20141224
  Receipt Date: 20141224
  Transmission Date: 20150529
  Serious: Yes (Other)
  Sender: FDA-Public Use
  Company Number: CH-GALDERMA-CH14004721

PATIENT
  Age: 38 Year
  Sex: Female

DRUGS (4)
  1. ASPIRIN CARDIO [Suspect]
     Active Substance: ASPIRIN
     Indication: TRANSIENT ISCHAEMIC ATTACK
     Route: 048
     Dates: start: 2011
  2. CETRIZINE [Suspect]
     Active Substance: CETIRIZINE HYDROCHLORIDE
     Route: 048
  3. ORACEA [Suspect]
     Active Substance: DOXYCYCLINE
     Indication: ACNE
     Route: 048
     Dates: start: 20140111, end: 20140113
  4. ASPIRIN CARDIO [Suspect]
     Active Substance: ASPIRIN
     Indication: MIGRAINE

REACTIONS (3)
  - Product use issue [Recovered/Resolved]
  - Exposure during pregnancy [Recovered/Resolved]
  - Abortion induced [Recovered/Resolved]
